FAERS Safety Report 24809066 (Version 1)
Quarter: 2025Q1

REPORT INFORMATION
  Report Type: Spontaneous
  Country: US (occurrence: US)
  Receive Date: 20250106
  Receipt Date: 20250106
  Transmission Date: 20250409
  Serious: No
  Sender: AMGEN
  Company Number: US-AMGEN-USASP2024255243

PATIENT
  Sex: Female

DRUGS (2)
  1. OTEZLA [Suspect]
     Active Substance: APREMILAST
     Indication: Psoriasis
     Route: 065
  2. OTEZLA [Suspect]
     Active Substance: APREMILAST
     Route: 065

REACTIONS (2)
  - Adverse drug reaction [Unknown]
  - Diarrhoea [Unknown]
